FAERS Safety Report 8582876 (Version 5)
Quarter: 2014Q2

REPORT INFORMATION
  Report Type: Report from Study
  Country: US (occurrence: US)
  Receive Date: 20120529
  Receipt Date: 20140402
  Transmission Date: 20141212
  Serious: Yes (Hospitalization)
  Sender: FDA-Public Use
  Company Number: US-JNJFOC-20120515248

PATIENT
  Age: 13 Year
  Sex: Female
  Weight: 56 kg

DRUGS (10)
  1. REMICADE [Suspect]
     Indication: COLITIS ULCERATIVE
     Route: 042
     Dates: start: 20120426
  2. REMICADE [Suspect]
     Indication: COLITIS ULCERATIVE
     Route: 042
     Dates: start: 20120404
  3. PREDNISONE [Concomitant]
     Route: 065
  4. ROWASA [Concomitant]
     Route: 065
  5. CORTIFOAM [Concomitant]
     Route: 065
  6. PRILOSEC [Concomitant]
     Route: 065
  7. ANTIBIOTICS [Concomitant]
     Route: 065
  8. HYDROCORTISONE [Concomitant]
     Route: 065
  9. 5-ASA [Concomitant]
     Route: 054
  10. PROBIOTICS [Concomitant]
     Route: 065

REACTIONS (2)
  - Colitis ulcerative [Recovered/Resolved]
  - Postoperative ileus [Recovered/Resolved]
